FAERS Safety Report 7364963-7 (Version None)
Quarter: 2011Q1

REPORT INFORMATION
  Report Type: 
  Country: None (occurrence: None)
  Receive Date: 20110321
  Receipt Date: 20110308
  Transmission Date: 20110831
  Serious: Yes (Hospitalization)
  Sender: FDA-Public Use
  Company Number: US-JNJFOC-20060203178

PATIENT
  Sex: Male
  Weight: 72 kg

DRUGS (10)
  1. INFLIXIMAB [Suspect]
     Indication: INFLAMMATORY BOWEL DISEASE
     Route: 042
  2. INFLIXIMAB [Suspect]
     Route: 042
  3. INFLIXIMAB [Suspect]
     Route: 042
  4. PREVACID [Concomitant]
  5. INFLIXIMAB [Suspect]
     Route: 042
  6. METHOTREXATE [Concomitant]
  7. FAMOTIDINE [Concomitant]
     Route: 042
  8. URSODIOL [Concomitant]
  9. INFLIXIMAB [Suspect]
     Route: 042
  10. FOLIC ACID [Concomitant]

REACTIONS (1)
  - PANCREATITIS [None]
